FAERS Safety Report 11891642 (Version 1)
Quarter: 2016Q1

REPORT INFORMATION
  Report Type: Spontaneous
  Country: US (occurrence: None)
  Receive Date: 20160105
  Receipt Date: 20160105
  Transmission Date: 20160526
  Serious: No
  Sender: FDA-Public Use
  Company Number: None

PATIENT
  Age: 14 Year
  Sex: Female
  Weight: 43.09 kg

DRUGS (7)
  1. LAMICTAL [Concomitant]
     Active Substance: LAMOTRIGINE
  2. WELLBUTRIN [Concomitant]
     Active Substance: BUPROPION HYDROCHLORIDE
  3. DOXYCYCLINE. [Concomitant]
     Active Substance: DOXYCYCLINE
  4. VIT. D [Concomitant]
  5. LITHIUM. [Concomitant]
     Active Substance: LITHIUM
  6. RISPERDAL [Concomitant]
     Active Substance: RISPERIDONE
  7. RISPERIDONE 2 MG [Suspect]
     Active Substance: RISPERIDONE
     Indication: AGGRESSION
     Dosage: TAKEN BY MOUTH (PILLS)
     Dates: start: 20151213, end: 20160103

REACTIONS (2)
  - Tremor [None]
  - Restlessness [None]

NARRATIVE: CASE EVENT DATE: 20160103
